FAERS Safety Report 10975102 (Version 2)
Quarter: 2015Q2

REPORT INFORMATION
  Report Type: Spontaneous
  Country: JP (occurrence: JP)
  Receive Date: 20150401
  Receipt Date: 20150409
  Transmission Date: 20150821
  Serious: Yes (Other)
  Sender: FDA-Public Use
  Company Number: JP-ASTELLAS-2015JP006786

PATIENT
  Sex: Male

DRUGS (2)
  1. BETANIS [Suspect]
     Active Substance: MIRABEGRON
     Indication: PROSTATE CANCER
     Dosage: UNK, UNK, UNKNOWN FREQ.
     Route: 048
  2. HARNAL [Suspect]
     Active Substance: TAMSULOSIN HYDROCHLORIDE
     Indication: PROSTATE CANCER
     Dosage: UNK, UNK, UNKNOWN FREQ.
     Route: 048

REACTIONS (2)
  - Off label use [Unknown]
  - Dementia [Unknown]
